FAERS Safety Report 18147884 (Version 4)
Quarter: 2020Q3

REPORT INFORMATION
  Report Type: Report from Study
  Country: KR (occurrence: KR)
  Receive Date: 20200814
  Receipt Date: 20200903
  Transmission Date: 20201104
  Serious: Yes (Hospitalization)
  Sender: FDA-Public Use
  Company Number: KR-ROCHE-2654599

PATIENT
  Age: 49 Year
  Sex: Male
  Weight: 67 kg

DRUGS (23)
  1. REGORAFENIB. [Suspect]
     Active Substance: REGORAFENIB
     Indication: COLORECTAL CANCER METASTATIC
     Dosage: DATE OF MOST RECENT DOSE OF REGORAFENIB PRIOR TO AE ONSET: 01/AUG/2020
     Route: 065
     Dates: start: 20200724
  2. ALBUMIN [Concomitant]
     Active Substance: ALBUMIN HUMAN
     Route: 042
     Dates: start: 20200803, end: 20200803
  3. TANTUM [Concomitant]
     Active Substance: BENZYDAMINE HYDROCHLORIDE
     Indication: STOMATITIS
     Route: 061
     Dates: start: 20200805
  4. AB?928. [Suspect]
     Active Substance: AB-928
     Indication: COLORECTAL CANCER METASTATIC
     Dosage: DATE OF MOST RECENT DOSE OF AB928 PRIOR TO AE ONSET: 02/AUG/2020
     Route: 065
     Dates: start: 20200724
  5. PANTOLOC [Concomitant]
     Active Substance: PANTOPRAZOLE SODIUM
     Indication: PROPHYLAXIS
     Route: 048
     Dates: start: 20200808, end: 20200811
  6. KANARB [Concomitant]
     Route: 048
     Dates: start: 20200805, end: 20200811
  7. DIABEX [Concomitant]
     Active Substance: METFORMIN HYDROCHLORIDE
     Indication: TYPE 2 DIABETES MELLITUS
     Route: 048
     Dates: start: 20200805, end: 20200805
  8. DIABEX [Concomitant]
     Active Substance: METFORMIN HYDROCHLORIDE
     Route: 048
     Dates: start: 20200806
  9. MAGNESIUM SULFATE. [Concomitant]
     Active Substance: MAGNESIUM SULFATE
     Route: 042
     Dates: start: 20200803, end: 20200803
  10. VASELINE PURE [Concomitant]
     Active Substance: PETROLATUM
     Indication: PALMAR-PLANTAR ERYTHRODYSAESTHESIA SYNDROME
     Route: 061
     Dates: start: 20200805
  11. LIPITOR [Concomitant]
     Active Substance: ATORVASTATIN CALCIUM
     Indication: HYPERLIPIDAEMIA
     Route: 048
     Dates: start: 20190103, end: 20200715
  12. CENTIREX ADVANCE [Concomitant]
     Route: 048
     Dates: start: 20200724
  13. KANARB [Concomitant]
     Indication: HYPERTENSION
     Route: 048
     Dates: start: 20200730, end: 20200802
  14. UREA. [Concomitant]
     Active Substance: UREA
     Indication: PALMAR-PLANTAR ERYTHRODYSAESTHESIA SYNDROME
     Route: 061
     Dates: start: 20200806
  15. TAZOPERAN [Concomitant]
     Route: 042
     Dates: start: 20200803, end: 20200803
  16. GLUCOPHAGE [Concomitant]
     Active Substance: METFORMIN HYDROCHLORIDE
     Indication: TYPE 2 DIABETES MELLITUS
     Route: 048
     Dates: start: 20191212
  17. INSTILLAGEL [Concomitant]
     Active Substance: CHLORHEXIDINE GLUCONATE\LIDOCAINE HYDROCHLORIDE
     Dates: start: 20200803, end: 20200803
  18. TAZOPERAN [Concomitant]
     Route: 042
     Dates: start: 20200804, end: 20200806
  19. ATEZOLIZUMAB. [Suspect]
     Active Substance: ATEZOLIZUMAB
     Indication: COLORECTAL CANCER METASTATIC
     Dosage: DATE OF MOST RECENT DOSE OF ATEZOLIZYMAB PRIOR TO AE ONSET: 24/JUL/2020
     Route: 041
     Dates: start: 20200724
  20. HUMULIN R [Concomitant]
     Active Substance: INSULIN HUMAN
     Indication: HYPERGLYCAEMIA
     Route: 058
     Dates: start: 20200804, end: 20200805
  21. TAZOPERAN [Concomitant]
     Indication: PROPHYLAXIS
     Route: 042
     Dates: start: 20200807, end: 20200808
  22. CRAVIT [Concomitant]
     Active Substance: LEVOFLOXACIN
     Indication: CORNEAL ABRASION
     Route: 047
     Dates: start: 20200807, end: 20200812
  23. REFRESH PLUS [Concomitant]
     Active Substance: CARBOXYMETHYLCELLULOSE SODIUM
     Indication: CORNEAL ABRASION
     Route: 047
     Dates: start: 20200807, end: 20200812

REACTIONS (2)
  - Hypersensitivity [Recovered/Resolved]
  - Rash maculo-papular [Recovered/Resolved]

NARRATIVE: CASE EVENT DATE: 20200802
